FAERS Safety Report 13895049 (Version 1)
Quarter: 2017Q3

REPORT INFORMATION
  Report Type: Spontaneous
  Country: US (occurrence: US)
  Receive Date: 20170817
  Receipt Date: 20170817
  Transmission Date: 20171127
  Serious: Yes (Disabling)
  Sender: FDA-Public Use
  Company Number: None

PATIENT
  Age: 26 Year
  Sex: Female
  Weight: 49.5 kg

DRUGS (1)
  1. ROCEPHIN [Suspect]
     Active Substance: CEFTRIAXONE SODIUM
     Indication: SEXUALLY TRANSMITTED DISEASE
     Route: 030

REACTIONS (7)
  - Quality of life decreased [None]
  - Contusion [None]
  - Burning sensation [None]
  - Diarrhoea [None]
  - Rash [None]
  - Adnexa uteri pain [None]
  - Cystitis [None]

NARRATIVE: CASE EVENT DATE: 20150810
